FAERS Safety Report 25498371 (Version 1)
Quarter: 2025Q3

REPORT INFORMATION
  Report Type: Spontaneous
  Country: IN (occurrence: IN)
  Receive Date: 20250701
  Receipt Date: 20250701
  Transmission Date: 20251020
  Serious: Yes (Other)
  Sender: STRIDES
  Company Number: IN-STRIDES ARCOLAB LIMITED-2025SP007816

PATIENT
  Sex: Male

DRUGS (24)
  1. METHOTREXATE [Suspect]
     Active Substance: METHOTREXATE
     Indication: B-cell type acute leukaemia
     Route: 065
  2. METHOTREXATE [Suspect]
     Active Substance: METHOTREXATE
     Indication: Leukaemia recurrent
  3. METHOTREXATE [Suspect]
     Active Substance: METHOTREXATE
     Indication: Nervous system disorder
  4. ETOPOSIDE [Suspect]
     Active Substance: ETOPOSIDE
     Indication: B-cell type acute leukaemia
     Route: 065
  5. ETOPOSIDE [Suspect]
     Active Substance: ETOPOSIDE
     Indication: Leukaemia recurrent
  6. ETOPOSIDE [Suspect]
     Active Substance: ETOPOSIDE
     Indication: Nervous system disorder
  7. DOXORUBICIN [Suspect]
     Active Substance: DOXORUBICIN
     Indication: B-cell type acute leukaemia
     Route: 065
  8. DOXORUBICIN [Suspect]
     Active Substance: DOXORUBICIN
     Indication: Leukaemia recurrent
  9. DOXORUBICIN [Suspect]
     Active Substance: DOXORUBICIN
     Indication: Nervous system disorder
  10. VINCRISTINE [Suspect]
     Active Substance: VINCRISTINE
     Indication: B-cell type acute leukaemia
     Route: 065
  11. VINCRISTINE [Suspect]
     Active Substance: VINCRISTINE
     Indication: Leukaemia recurrent
  12. VINCRISTINE [Suspect]
     Active Substance: VINCRISTINE
     Indication: Nervous system disorder
  13. DAUNORUBICIN [Suspect]
     Active Substance: DAUNORUBICIN
     Indication: B-cell type acute leukaemia
     Route: 065
  14. ASPARAGINASE [Suspect]
     Active Substance: ASPARAGINASE
     Indication: B-cell type acute leukaemia
     Route: 065
  15. ASPARAGINASE [Suspect]
     Active Substance: ASPARAGINASE
     Indication: Leukaemia recurrent
  16. ASPARAGINASE [Suspect]
     Active Substance: ASPARAGINASE
     Indication: Nervous system disorder
  17. CYCLOPHOSPHAMIDE [Suspect]
     Active Substance: CYCLOPHOSPHAMIDE
     Indication: B-cell type acute leukaemia
     Route: 065
  18. CYTARABINE [Suspect]
     Active Substance: CYTARABINE
     Indication: B-cell type acute leukaemia
     Route: 065
  19. MERCAPTOPURINE [Suspect]
     Active Substance: MERCAPTOPURINE
     Indication: B-cell type acute leukaemia
     Route: 065
  20. MERCAPTOPURINE [Suspect]
     Active Substance: MERCAPTOPURINE
     Indication: Leukaemia recurrent
  21. MERCAPTOPURINE [Suspect]
     Active Substance: MERCAPTOPURINE
     Indication: Nervous system disorder
  22. IFOSFAMIDE [Suspect]
     Active Substance: IFOSFAMIDE
     Indication: B-cell type acute leukaemia
     Route: 065
  23. IFOSFAMIDE [Suspect]
     Active Substance: IFOSFAMIDE
     Indication: Leukaemia recurrent
  24. IFOSFAMIDE [Suspect]
     Active Substance: IFOSFAMIDE
     Indication: Nervous system disorder

REACTIONS (2)
  - Acute myeloid leukaemia [Recovering/Resolving]
  - Off label use [Unknown]
